FAERS Safety Report 12214385 (Version 2)
Quarter: 2016Q2

REPORT INFORMATION
  Report Type: Report from Study
  Country: US (occurrence: US)
  Receive Date: 20160328
  Receipt Date: 20160421
  Transmission Date: 20160815
  Serious: Yes (Death, Hospitalization)
  Sender: FDA-Public Use
  Company Number: US-JNJFOC-20160226121

PATIENT
  Age: 55 Year
  Sex: Female

DRUGS (4)
  1. PEPCID [Concomitant]
     Active Substance: FAMOTIDINE
  2. ZOFRAN [Concomitant]
     Active Substance: ONDANSETRON HYDROCHLORIDE
  3. IMBRUVICA [Suspect]
     Active Substance: IBRUTINIB
     Indication: CHRONIC LYMPHOCYTIC LEUKAEMIA
     Route: 048
     Dates: start: 20140320
  4. CELEXA [Concomitant]
     Active Substance: CITALOPRAM HYDROBROMIDE

REACTIONS (11)
  - Haemophilus infection [Unknown]
  - Blood calcium increased [Recovered/Resolved]
  - Pain [Unknown]
  - Anaemia [Unknown]
  - Inappropriate antidiuretic hormone secretion [Unknown]
  - Disease progression [Fatal]
  - Haemoglobin decreased [Unknown]
  - Treatment noncompliance [Unknown]
  - Gastroenteritis viral [Recovering/Resolving]
  - Lacrimal disorder [Recovered/Resolved]
  - Platelet count decreased [Unknown]

NARRATIVE: CASE EVENT DATE: 20141230
